FAERS Safety Report 12633003 (Version 2)
Quarter: 2016Q3

REPORT INFORMATION
  Report Type: Spontaneous
  Country: US (occurrence: US)
  Receive Date: 20160808
  Receipt Date: 20160808
  Transmission Date: 20161109
  Serious: No
  Sender: FDA-Public Use
  Company Number: US-BEH-2016058057

PATIENT
  Sex: Female
  Weight: 61 kg

DRUGS (27)
  1. DIPHENHYDRAMINE. [Concomitant]
     Active Substance: DIPHENHYDRAMINE
  2. SOMA [Concomitant]
     Active Substance: CARISOPRODOL
  3. NEXIUM [Concomitant]
     Active Substance: ESOMEPRAZOLE MAGNESIUM
  4. DIOVAN [Concomitant]
     Active Substance: VALSARTAN
  5. ESTRADIOL. [Concomitant]
     Active Substance: ESTRADIOL
  6. HIZENTRA [Suspect]
     Active Substance: HUMAN IMMUNOGLOBULIN G
  7. CEFDINIR. [Concomitant]
     Active Substance: CEFDINIR
  8. TOBRAMYCIN. [Concomitant]
     Active Substance: TOBRAMYCIN
  9. SYNTHROID [Concomitant]
     Active Substance: LEVOTHYROXINE SODIUM
  10. COMBIVENT [Concomitant]
     Active Substance: ALBUTEROL SULFATE\IPRATROPIUM BROMIDE
  11. SINGULAIR [Concomitant]
     Active Substance: MONTELUKAST SODIUM
  12. PULMICORT TURBUHALER [Concomitant]
     Active Substance: BUDESONIDE
  13. FENTANYL. [Concomitant]
     Active Substance: FENTANYL
  14. ACETAMINOPHEN. [Concomitant]
     Active Substance: ACETAMINOPHEN
  15. ROCEPHIN [Concomitant]
     Active Substance: CEFTRIAXONE SODIUM
  16. ALMODIPINE [Concomitant]
  17. SIMVASTATIN. [Concomitant]
     Active Substance: SIMVASTATIN
  18. ACIDOPHILUIS [Concomitant]
  19. HIZENTRA [Suspect]
     Active Substance: HUMAN IMMUNOGLOBULIN G
     Indication: IMMUNODEFICIENCY COMMON VARIABLE
     Route: 058
  20. HIZENTRA [Suspect]
     Active Substance: HUMAN IMMUNOGLOBULIN G
     Route: 058
  21. LIDOCAINE. [Concomitant]
     Active Substance: LIDOCAINE
  22. DIFLUCAN [Concomitant]
     Active Substance: FLUCONAZOLE
  23. ZOFRAN [Concomitant]
     Active Substance: ONDANSETRON HYDROCHLORIDE
  24. DILAUDID [Concomitant]
     Active Substance: HYDROMORPHONE HYDROCHLORIDE
  25. SYMBICORT [Concomitant]
     Active Substance: BUDESONIDE\FORMOTEROL FUMARATE DIHYDRATE
  26. PEPCID [Concomitant]
     Active Substance: FAMOTIDINE
  27. LEXAPRO [Concomitant]
     Active Substance: ESCITALOPRAM OXALATE

REACTIONS (1)
  - Sinusitis [Unknown]
